FAERS Safety Report 6630252-9 (Version None)
Quarter: 2010Q1

REPORT INFORMATION
  Report Type: 
  Country: None (occurrence: None)
  Receive Date: 20100311
  Receipt Date: 20100303
  Transmission Date: 20100710
  Serious: Yes (Hospitalization)
  Sender: FDA-Public Use
  Company Number: B0629716A

PATIENT
  Sex: Female

DRUGS (5)
  1. LAMICTAL [Suspect]
     Indication: CONVULSION
     Route: 048
     Dates: start: 20090715, end: 20090824
  2. SEROQUEL [Concomitant]
     Dosage: 75MG PER DAY
     Route: 048
  3. DEPAS [Concomitant]
     Dosage: 3MG PER DAY
     Route: 048
  4. ROHYPNOL [Concomitant]
     Dosage: 2MG PER DAY
     Route: 048
  5. VALERIAN [Concomitant]
     Dosage: 600MG PER DAY
     Route: 048

REACTIONS (15)
  - BLOOD CREATININE INCREASED [None]
  - BLOOD LACTATE DEHYDROGENASE INCREASED [None]
  - BLOOD POTASSIUM INCREASED [None]
  - BLOOD SODIUM DECREASED [None]
  - BLOOD UREA INCREASED [None]
  - C-REACTIVE PROTEIN INCREASED [None]
  - DRUG ERUPTION [None]
  - GAMMA-GLUTAMYLTRANSFERASE INCREASED [None]
  - LYMPHOCYTE COUNT DECREASED [None]
  - NEUTROPHIL COUNT INCREASED [None]
  - PLATELET COUNT INCREASED [None]
  - PROTEIN TOTAL DECREASED [None]
  - PYREXIA [None]
  - SKIN LESION [None]
  - WHITE BLOOD CELL COUNT INCREASED [None]
